FAERS Safety Report 4780771-5 (Version None)
Quarter: 2005Q3

REPORT INFORMATION
  Report Type: 
  Country: None (occurrence: None)
  Receive Date: 20050920
  Receipt Date: 20050909
  Transmission Date: 20060218
  Serious: Yes (Other)
  Sender: FDA-Public Use
  Company Number: 200511719BBE

PATIENT
  Sex: 0

DRUGS (1)
  1. GAMUNEX [Suspect]
     Dosage: INTRAVENOUS
     Route: 042

REACTIONS (4)
  - BONE PAIN [None]
  - HYPERKERATOSIS [None]
  - OSTEITIS [None]
  - ULCER [None]
